FAERS Safety Report 9810558 (Version 2)
Quarter: 2014Q4

REPORT INFORMATION
  Report Type: Spontaneous
  Country: US (occurrence: US)
  Receive Date: 20140110
  Receipt Date: 20141229
  Transmission Date: 20150529
  Serious: Yes (Other)
  Sender: FDA-Public Use
  Company Number: US-SANOFI-AVENTIS-2013SA088517

PATIENT
  Age: 67 Year

DRUGS (7)
  1. PLAVIX [Suspect]
     Active Substance: CLOPIDOGREL BISULFATE
     Indication: PROPHYLAXIS
     Route: 065
     Dates: start: 19930901, end: 20110925
  2. PLAVIX [Suspect]
     Active Substance: CLOPIDOGREL BISULFATE
     Indication: MYOCARDIAL INFARCTION
     Route: 065
     Dates: start: 19930901, end: 20110925
  3. COUMADIN [Concomitant]
     Active Substance: WARFARIN SODIUM
     Indication: STENT PLACEMENT
     Dates: start: 199907, end: 199909
  4. PLAVIX [Suspect]
     Active Substance: CLOPIDOGREL BISULFATE
     Indication: STENT PLACEMENT
     Route: 065
     Dates: start: 19930901, end: 20110925
  5. PLAVIX [Suspect]
     Active Substance: CLOPIDOGREL BISULFATE
     Indication: ACUTE CORONARY SYNDROME
     Route: 065
     Dates: start: 19930901, end: 20110925
  6. ASPIRIN. [Suspect]
     Active Substance: ASPIRIN
     Route: 065
     Dates: start: 199309, end: 201110
  7. COUMADIN [Concomitant]
     Active Substance: WARFARIN SODIUM
     Indication: STENT PLACEMENT
     Dates: start: 199309, end: 199310

REACTIONS (4)
  - Amnesia [Unknown]
  - Disturbance in attention [Unknown]
  - Thinking abnormal [Unknown]
  - Cerebral haemorrhage [Not Recovered/Not Resolved]

NARRATIVE: CASE EVENT DATE: 20110925
